FAERS Safety Report 11989449 (Version 2)
Quarter: 2016Q1

REPORT INFORMATION
  Report Type: Spontaneous
  Country: US (occurrence: US)
  Receive Date: 20160202
  Receipt Date: 20160203
  Transmission Date: 20160526
  Serious: Yes (Other)
  Sender: FDA-Public Use
  Company Number: US-JNJFOC-20160116552

PATIENT

DRUGS (4)
  1. DIPHENHYDRAMINE HYDROCHLORIDE. [Suspect]
     Active Substance: DIPHENHYDRAMINE HYDROCHLORIDE
     Indication: SEXUAL ABUSE
     Route: 065
  2. DIPHENHYDRAMINE HYDROCHLORIDE. [Suspect]
     Active Substance: DIPHENHYDRAMINE HYDROCHLORIDE
     Indication: PRODUCT USED FOR UNKNOWN INDICATION
     Route: 065
  3. DIMENHYDRINATE. [Suspect]
     Active Substance: DIMENHYDRINATE
     Indication: SEXUAL ABUSE
     Route: 065
  4. DIMENHYDRINATE. [Suspect]
     Active Substance: DIMENHYDRINATE
     Indication: PRODUCT USED FOR UNKNOWN INDICATION
     Route: 065

REACTIONS (11)
  - Agitation [Unknown]
  - Anticholinergic syndrome [Unknown]
  - Memory impairment [Unknown]
  - Tremor [Unknown]
  - Intentional product misuse [Unknown]
  - Drug dependence [Unknown]
  - Withdrawal syndrome [Unknown]
  - Hallucination [Unknown]
  - Tachycardia [Unknown]
  - Chest pain [Unknown]
  - Drug abuse [Unknown]
